FAERS Safety Report 9342569 (Version 2)
Quarter: 2013Q3

REPORT INFORMATION
  Report Type: Spontaneous
  Country: US (occurrence: US)
  Receive Date: 20130611
  Receipt Date: 20130815
  Transmission Date: 20140515
  Serious: No
  Sender: FDA-Public Use
  Company Number: US-009507513-1305USA016745

PATIENT
  Age: 29 Year
  Sex: Female
  Weight: 69.39 kg

DRUGS (3)
  1. CLARITIN [Suspect]
     Indication: ALLERGY TO ANIMAL
     Dosage: 10 MG, QD
     Route: 048
     Dates: start: 20130401, end: 20130518
  2. CLARITIN [Suspect]
     Indication: SEASONAL ALLERGY
  3. VITAMINS (UNSPECIFIED) [Concomitant]
     Indication: PRODUCT USED FOR UNKNOWN INDICATION
     Dosage: UNK, UNKNOWN

REACTIONS (1)
  - Drug ineffective [Unknown]
